FAERS Safety Report 8037257-4 (Version None)
Quarter: 2012Q1

REPORT INFORMATION
  Report Type: 
  Country: None (occurrence: None)
  Receive Date: 20120111
  Receipt Date: 20111227
  Transmission Date: 20120608
  Serious: No
  Sender: FDA-Public Use
  Company Number: US-ENDO PHARMACEUTICALS INC.-OPER20110322

PATIENT
  Sex: Female
  Weight: 49.94 kg

DRUGS (5)
  1. OPANA ER [Suspect]
     Indication: PAIN
     Route: 048
     Dates: start: 20110701, end: 20111001
  2. OPANA [Suspect]
     Dosage: 10 MG
     Route: 048
     Dates: start: 20111001, end: 20111101
  3. OPANA [Suspect]
     Indication: PAIN
     Route: 048
     Dates: start: 20110701, end: 20111001
  4. OPANA ER [Suspect]
     Route: 048
     Dates: start: 20111001, end: 20111101
  5. OPANA ER [Suspect]
     Route: 048
     Dates: start: 20111101, end: 20111101

REACTIONS (6)
  - HEART RATE DECREASED [None]
  - HYPOTENSION [None]
  - THERAPEUTIC RESPONSE UNEXPECTED [None]
  - OVERDOSE [None]
  - STUPOR [None]
  - URINARY HESITATION [None]
